FAERS Safety Report 9467913 (Version 1)
Quarter: 2013Q3

REPORT INFORMATION
  Report Type: Spontaneous
  Country: US (occurrence: US)
  Receive Date: 20130821
  Receipt Date: 20130821
  Transmission Date: 20140515
  Serious: No
  Sender: FDA-Public Use
  Company Number: US-B.I. PHARMACEUTICALS,INC./RIDGEFIELD-2013-BI-24582BP

PATIENT
  Sex: Female
  Weight: 111 kg

DRUGS (18)
  1. PRADAXA [Suspect]
     Indication: ATRIAL FIBRILLATION
     Dosage: 300 MG
     Route: 048
     Dates: start: 2011
  2. CARTIA XT [Concomitant]
     Indication: ATRIAL FIBRILLATION
     Dosage: 120 MG
     Route: 048
     Dates: start: 2012
  3. LOVASTATIN [Concomitant]
     Indication: BLOOD CHOLESTEROL INCREASED
     Dosage: 40 MG
     Route: 048
     Dates: start: 2009
  4. HYDROXYCHLOROQUINE [Concomitant]
     Indication: ARTHRITIS
     Dosage: 400 MG
     Route: 048
     Dates: start: 2009
  5. FOLIC ACID [Concomitant]
     Indication: ARTHRITIS
     Dosage: 2 G
     Route: 048
     Dates: start: 2009
  6. LASIX [Concomitant]
     Indication: JOINT SWELLING
     Route: 048
     Dates: start: 2009
  7. LORTAB [Concomitant]
     Indication: ARTHRITIS
     Dosage: STRENGTH: 5 MG / 500 MG;
     Route: 048
     Dates: start: 2009
  8. LORAZEPAM [Concomitant]
     Indication: ANXIETY
     Route: 048
     Dates: start: 2009
  9. ATENOLOL [Concomitant]
     Indication: CARDIAC FAILURE CONGESTIVE
     Dosage: 25 MG
     Route: 048
     Dates: start: 2009
  10. NEXIUM [Concomitant]
     Indication: GASTROOESOPHAGEAL REFLUX DISEASE
     Dosage: 40 MG
     Route: 048
     Dates: start: 2009
  11. POTASSIUM [Concomitant]
     Indication: BLOOD POTASSIUM DECREASED
     Route: 048
     Dates: start: 2009
  12. XOPENEX [Concomitant]
     Indication: HYPERSENSITIVITY
     Route: 048
     Dates: start: 2009
  13. HYDROCHLOROTHIAZIDE [Concomitant]
     Indication: JOINT SWELLING
     Dosage: 12.5 MG
     Route: 048
     Dates: start: 2009
  14. METHOTREXATE [Concomitant]
     Indication: ARTHRITIS
     Dosage: 20 MG
     Route: 048
     Dates: start: 2009
  15. ASPIRIN [Concomitant]
     Indication: ATRIAL FIBRILLATION
     Dosage: 40 MG
     Route: 048
     Dates: start: 2009
  16. FLEXERIL [Concomitant]
     Indication: ARTHRITIS
     Dosage: (TABLET) STRENGTH: 10 MG;
     Route: 048
     Dates: start: 2009
  17. SENNA-S [Concomitant]
     Indication: CONSTIPATION
     Route: 048
     Dates: start: 2009
  18. LORATADINE [Concomitant]
     Indication: HYPERSENSITIVITY
     Route: 048
     Dates: start: 2009

REACTIONS (7)
  - Pain [Not Recovered/Not Resolved]
  - Pain [Not Recovered/Not Resolved]
  - Joint swelling [Not Recovered/Not Resolved]
  - Headache [Not Recovered/Not Resolved]
  - Fall [Recovered/Resolved]
  - Contusion [Recovered/Resolved]
  - Fatigue [Not Recovered/Not Resolved]
